FAERS Safety Report 5551239-3 (Version None)
Quarter: 2007Q4

REPORT INFORMATION
  Report Type: 
  Country: None (occurrence: None)
  Receive Date: 20071212
  Receipt Date: 20071203
  Transmission Date: 20080405
  Serious: Yes (Other)
  Sender: FDA-Public Use
  Company Number: SE-JNJFOC-20071201262

PATIENT
  Age: 9 Year
  Sex: Male

DRUGS (3)
  1. CONCERTA [Suspect]
     Indication: ATTENTION DEFICIT/HYPERACTIVITY DISORDER
  2. MELATONIN [Concomitant]
  3. RITALIN [Concomitant]

REACTIONS (2)
  - ANOREXIA [None]
  - EOSINOPHIL COUNT DECREASED [None]
